FAERS Safety Report 24996059 (Version 2)
Quarter: 2025Q2

REPORT INFORMATION
  Report Type: Spontaneous
  Country: US (occurrence: US)
  Receive Date: 20250221
  Receipt Date: 20250521
  Transmission Date: 20250717
  Serious: No
  Sender: CATALYST PHARMA
  Company Number: US-CATALYST PHARMACEUTICALS-US-CATA-25-00002

PATIENT
  Age: 16 Year
  Sex: Male
  Weight: 78.912 kg

DRUGS (26)
  1. AGAMREE [Suspect]
     Active Substance: VAMOROLONE
     Indication: Duchenne muscular dystrophy
     Dosage: 7.5 ML DAILY
     Route: 048
     Dates: start: 20241211
  2. AGAMREE [Suspect]
     Active Substance: VAMOROLONE
     Route: 048
  3. RISPERIDONE [Concomitant]
     Active Substance: RISPERIDONE
     Indication: Anger
     Dosage: 0.5 MG DAILY
     Route: 065
  4. RISPERIDONE [Concomitant]
     Active Substance: RISPERIDONE
     Indication: Mood swings
  5. NICOTINAMIDE RIBOSIDE CHLORIDE [Concomitant]
     Active Substance: NICOTINAMIDE RIBOSIDE CHLORIDE
     Indication: Antioxidant therapy
     Dosage: 115 MG TWICE DAILY
     Route: 065
  6. NICOTINAMIDE RIBOSIDE CHLORIDE [Concomitant]
     Active Substance: NICOTINAMIDE RIBOSIDE CHLORIDE
     Indication: Orthobiologic treatment
  7. NAD+ [Concomitant]
     Indication: Antioxidant therapy
     Dosage: 100 MG TWICE WEEKLY
     Route: 058
  8. NAD+ [Concomitant]
     Indication: Orthobiologic treatment
  9. SERTRALINE HYDROCHLORIDE [Concomitant]
     Active Substance: SERTRALINE HYDROCHLORIDE
     Indication: Depression
     Dosage: 25 MG DAILY
     Route: 048
  10. METHYLPHENIDATE HYDROCHLORIDE [Concomitant]
     Active Substance: METHYLPHENIDATE HYDROCHLORIDE
     Indication: Attention deficit hyperactivity disorder
     Route: 048
  11. DUVYZAT [Concomitant]
     Active Substance: GIVINOSTAT
     Indication: Duchenne muscular dystrophy
     Dosage: 5 ML TWICE DAILY
     Route: 048
  12. MAGNESIUM L-THREONATE [Concomitant]
     Indication: Duchenne muscular dystrophy
     Dosage: 144 MG DAILY
     Route: 065
  13. SELENIUM [Concomitant]
     Active Substance: SELENIUM
     Indication: Duchenne muscular dystrophy
     Dosage: 100 MCG EVERY EVENING
     Route: 048
  14. CREATINE [Concomitant]
     Active Substance: CREATINE
     Indication: Duchenne muscular dystrophy
     Dosage: 750 MG EVERY EVENING
     Route: 065
  15. AMONDYS [Concomitant]
     Indication: Duchenne muscular dystrophy
     Dosage: 100 MG/2 ML WEEKLY
     Route: 042
  16. COENZYME Q10 [Concomitant]
     Active Substance: DIETARY SUPPLEMENT\UBIDECARENONE
     Indication: Cardiovascular disorder
     Dosage: 200 MG DAILY
     Route: 048
  17. OMEGA-3 ACIDS [Concomitant]
     Active Substance: OMEGA-3 FATTY ACIDS
     Indication: Cardiovascular disorder
     Dosage: 4000 MG DAILY
     Route: 048
  18. LOSARTAN POTASSIUM [Concomitant]
     Active Substance: LOSARTAN POTASSIUM
     Indication: Cardiovascular disorder
     Dosage: 12.5 MG DAILY
     Route: 048
  19. VITAMIN C [Concomitant]
     Active Substance: ASCORBIC ACID
     Indication: Immune system disorder
     Dosage: 250 MG EVERY EVENING
     Route: 048
  20. ATROVENT HFA [Concomitant]
     Active Substance: IPRATROPIUM BROMIDE
     Indication: Lung disorder
     Dosage: 17 MCG PER ACT TWICE DAILY
     Route: 055
  21. VITAMIN D3 K2 [Concomitant]
     Indication: Osteoporosis
     Dosage: 2000 IU EVERY EVENING
     Route: 065
  22. ZOLEDRONIC ACID [Concomitant]
     Active Substance: ZOLEDRONIC ACID
     Indication: Osteoporosis
     Route: 042
  23. OMEPRAZOLE [Concomitant]
     Active Substance: OMEPRAZOLE
     Indication: Gastrointestinal disorder prophylaxis
     Route: 048
  24. TADALAFIL [Concomitant]
     Active Substance: TADALAFIL
     Indication: Muscle strength abnormal
     Dosage: 10 MG DAILY
     Route: 048
  25. VITAMINS [Concomitant]
     Active Substance: VITAMINS
     Indication: Hypovitaminosis
     Dosage: 1 TABLET DAILY
     Route: 048
  26. VITAMIN E [Concomitant]
     Active Substance: .ALPHA.-TOCOPHEROL
     Indication: Hypovitaminosis
     Dosage: 100 UNITS EVERY EVENING
     Route: 048

REACTIONS (4)
  - Anger [Not Recovered/Not Resolved]
  - Condition aggravated [Not Recovered/Not Resolved]
  - Impatience [Not Recovered/Not Resolved]
  - Emotional disorder [Not Recovered/Not Resolved]

NARRATIVE: CASE EVENT DATE: 20241201
